FAERS Safety Report 6978867-2 (Version None)
Quarter: 2010Q3

REPORT INFORMATION
  Report Type: 
  Country: None (occurrence: None)
  Receive Date: 20100913
  Receipt Date: 20100902
  Transmission Date: 20110219
  Serious: Yes (Other)
  Sender: FDA-Public Use
  Company Number: CA-JNJFOC-20100601656

PATIENT
  Sex: Female
  Weight: 56.8 kg

DRUGS (4)
  1. REMICADE [Suspect]
     Indication: RHEUMATOID ARTHRITIS
     Route: 042
  2. REMICADE [Suspect]
     Route: 042
  3. METHOTREXATE [Concomitant]
     Route: 058
  4. NAPROSYN [Concomitant]
     Route: 048

REACTIONS (1)
  - PULMONARY MYCOSIS [None]
